FAERS Safety Report 4490524-3 (Version None)
Quarter: 2004Q4

REPORT INFORMATION
  Report Type: 
  Country: None (occurrence: None)
  Receive Date: 20041029
  Receipt Date: 20041019
  Transmission Date: 20050328
  Serious: Yes (Hospitalization)
  Sender: FDA-Public Use
  Company Number: 2004CG02121

PATIENT
  Age: 76 Year
  Sex: Male

DRUGS (4)
  1. CRESTOR [Suspect]
     Indication: HYPERCHOLESTEROLAEMIA
     Dosage: 10 MG DAILY PO
     Route: 048
     Dates: start: 20040514, end: 20040901
  2. ISOPTIN [Suspect]
     Dates: start: 20040501
  3. PREVISCAN [Concomitant]
  4. PROFOFAN [Concomitant]

REACTIONS (1)
  - CONFUSIONAL STATE [None]
